FAERS Safety Report 6749880-5 (Version None)
Quarter: 2010Q2

REPORT INFORMATION
  Report Type: 
  Country: None (occurrence: None)
  Receive Date: 20100601
  Receipt Date: 20100518
  Transmission Date: 20101027
  Serious: Yes (Hospitalization, Other)
  Sender: FDA-Public Use
  Company Number: US-ELI_LILLY_AND_COMPANY-US201002000259

PATIENT
  Sex: Female

DRUGS (7)
  1. FORTEO [Suspect]
     Indication: OSTEOPOROSIS
     Dosage: 20 UG, DAILY (1/D)
     Dates: start: 20090701
  2. LYRICA [Concomitant]
  3. GABAPENTIN [Concomitant]
  4. NEXIUM [Concomitant]
  5. POTASSIUM [Concomitant]
  6. FIBERCON [Concomitant]
  7. NAPROXEN [Concomitant]

REACTIONS (1)
  - KNEE ARTHROPLASTY [None]
